FAERS Safety Report 14107919 (Version 2)
Quarter: 2017Q4

REPORT INFORMATION
  Report Type: Spontaneous
  Country: JP (occurrence: JP)
  Receive Date: 20171019
  Receipt Date: 20171117
  Transmission Date: 20180321
  Serious: No
  Sender: FDA-Public Use
  Company Number: JP-GLAXOSMITHKLINE-JP2017JPN158121

PATIENT
  Age: 79 Year
  Sex: Female

DRUGS (15)
  1. ALOSENN [Concomitant]
     Active Substance: SENNA LEAF
     Dosage: UNK
  2. MOHRUS TAPE L [Concomitant]
     Active Substance: KETOPROFEN
     Dosage: UNK
  3. CELLCEPT CAPSULE [Concomitant]
     Dosage: UNK
  4. URSODEOXYCHOLIC ACID [Concomitant]
     Active Substance: URSODIOL
     Dosage: UNK
  5. ALDACTONE A [Concomitant]
     Active Substance: SPIRONOLACTONE
     Dosage: UNK
  6. DERMOVATE [Concomitant]
     Active Substance: CLOBETASOL
     Dosage: UNK
  7. VFEND [Concomitant]
     Active Substance: VORICONAZOLE
     Dosage: UNK
  8. HIRUDOID SOFT [Concomitant]
     Active Substance: GLYCOSAMINOGLYCANS
     Dosage: UNK
  9. SAMTIREL [Suspect]
     Active Substance: ATOVAQUONE
     Indication: ANTIFUNGAL PROPHYLAXIS
     Dosage: 5 ML, BID
     Route: 048
     Dates: start: 201705
  10. BERASUS LA [Concomitant]
     Dosage: UNK
  11. TAKECAB [Concomitant]
     Active Substance: VONOPRAZAN FUMURATE
     Dosage: UNK
  12. REVATIO [Concomitant]
     Active Substance: SILDENAFIL CITRATE
     Dosage: UNK
  13. ANPLAG [Concomitant]
     Active Substance: SARPOGRELATE
     Dosage: UNK
  14. LIXIANA [Concomitant]
     Active Substance: EDOXABAN TOSYLATE
     Dosage: UNK
  15. DIART [Concomitant]
     Active Substance: AZOSEMIDE
     Dosage: UNK

REACTIONS (1)
  - Product use issue [Unknown]
